FAERS Safety Report 5237017-3 (Version None)
Quarter: 2007Q1

REPORT INFORMATION
  Report Type: 
  Country: None (occurrence: None)
  Receive Date: 20070213
  Receipt Date: 20070130
  Transmission Date: 20070707
  Serious: Yes (Hospitalization, Other)
  Sender: FDA-Public Use
  Company Number: AU-BRISTOL-MYERS SQUIBB COMPANY-12426474

PATIENT
  Age: 85 Year
  Sex: Female

DRUGS (6)
  1. IRBESARTAN [Suspect]
     Indication: CARDIAC FAILURE
     Route: 048
     Dates: start: 20031031
  2. BLINDED: PLACEBO [Suspect]
     Indication: CARDIAC FAILURE
  3. WARFARIN SODIUM [Concomitant]
     Route: 048
     Dates: end: 20030101
  4. ASPIRIN [Concomitant]
  5. PROPRANOLOL [Concomitant]
  6. SIMVASTATIN [Concomitant]

REACTIONS (2)
  - CARDIAC FAILURE [None]
  - PULMONARY OEDEMA [None]
